FAERS Safety Report 14263418 (Version 1)
Quarter: 2017Q4

REPORT INFORMATION
  Report Type: Spontaneous
  Country: CN (occurrence: CN)
  Receive Date: 20171208
  Receipt Date: 20171208
  Transmission Date: 20180321
  Serious: Yes (Hospitalization)
  Sender: FDA-Public Use
  Company Number: CN-ABBVIE-17P-035-2186884-00

PATIENT
  Age: 56 Year
  Sex: Female

DRUGS (6)
  1. PHENYTOIN. [Suspect]
     Active Substance: PHENYTOIN
     Route: 048
  2. SODIUM VALPROATE [Suspect]
     Active Substance: VALPROATE SODIUM
     Indication: EPILEPSY
     Route: 048
  3. PHENYTOIN. [Suspect]
     Active Substance: PHENYTOIN
     Indication: EPILEPSY
     Route: 048
  4. SODIUM VALPROATE [Suspect]
     Active Substance: VALPROATE SODIUM
     Route: 048
  5. SODIUM VALPROATE [Suspect]
     Active Substance: VALPROATE SODIUM
     Route: 048
  6. PHENYTOIN. [Suspect]
     Active Substance: PHENYTOIN
     Route: 048

REACTIONS (19)
  - Drug level increased [Unknown]
  - Visual impairment [Unknown]
  - Vision blurred [Unknown]
  - Vomiting [Unknown]
  - Asthenia [Unknown]
  - Persecutory delusion [Unknown]
  - Aggression [Unknown]
  - Pain [Unknown]
  - Pallor [Unknown]
  - Condition aggravated [Unknown]
  - Toxicity to various agents [Unknown]
  - Tinnitus [Unknown]
  - Nausea [Unknown]
  - Nystagmus [Unknown]
  - Dizziness [Unknown]
  - Gait disturbance [Unknown]
  - Fear [Unknown]
  - Gait inability [Unknown]
  - Dyskinesia [Unknown]
